FAERS Safety Report 17209486 (Version 1)
Quarter: 2019Q4

REPORT INFORMATION
  Report Type: Report from Study
  Country: CA (occurrence: CA)
  Receive Date: 20191227
  Receipt Date: 20191227
  Transmission Date: 20200122
  Serious: Yes (Hospitalization)
  Sender: FDA-Public Use
  Company Number: CA-ROCHE-2502215

PATIENT
  Age: 39 Year
  Sex: Male

DRUGS (1)
  1. OCREVUS [Suspect]
     Active Substance: OCRELIZUMAB
     Indication: PRIMARY PROGRESSIVE MULTIPLE SCLEROSIS
     Dosage: 300 MG AT DAY 0 AND 14 FOLLOWED BY 600 MG EVERY 6 MONTH ;ONGOING: YES
     Route: 042
     Dates: start: 20180627

REACTIONS (2)
  - Pancreatitis [Recovering/Resolving]
  - Gallbladder disorder [Unknown]

NARRATIVE: CASE EVENT DATE: 201912
